FAERS Safety Report 8733384 (Version 4)
Quarter: 2012Q4

REPORT INFORMATION
  Report Type: 
  Country: US (occurrence: US)
  Receive Date: 20120821
  Receipt Date: 20121112
  Transmission Date: 20130627
  Serious: No
  Sender: FDA-Public Use
  Company Number: US-PFIZER INC-2012202471

PATIENT
  Sex: Female

DRUGS (1)
  1. ZOLOFT [Suspect]
     Indication: ANXIETY
     Dosage: UNK

REACTIONS (13)
  - Dermatitis [Recovered/Resolved]
  - Derealisation [Unknown]
  - Feeling abnormal [Unknown]
  - Sleep disorder [Recovering/Resolving]
  - Withdrawal syndrome [Unknown]
  - Dizziness [Unknown]
  - Feeling drunk [Unknown]
  - Gait disturbance [Unknown]
  - Balance disorder [Unknown]
  - Tinnitus [Unknown]
  - Headache [Unknown]
  - Nausea [Unknown]
  - Vertigo [Unknown]
